FAERS Safety Report 13337960 (Version 2)
Quarter: 2017Q2

REPORT INFORMATION
  Report Type: Spontaneous
  Country: AU (occurrence: AU)
  Receive Date: 20170315
  Receipt Date: 20170417
  Transmission Date: 20170830
  Serious: No
  Sender: FDA-Public Use
  Company Number: AU-PFIZER INC-2017024158

PATIENT
  Age: 83 Year
  Sex: Female

DRUGS (7)
  1. ESTROGEN [Concomitant]
     Active Substance: ESTROGENS
     Dosage: UNK UNK, DAILY
  2. VALIUM [Concomitant]
     Active Substance: DIAZEPAM
     Dosage: UNK UNK, AS NEEDED
  3. KARVEA [Suspect]
     Active Substance: IRBESARTAN
     Dosage: 300MG 1 DAILY
  4. MINIPRESS [Suspect]
     Active Substance: PRAZOSIN HYDROCHLORIDE
     Indication: HYPERTENSION
     Dosage: 5 MG, 3X/DAY
  5. MINIPRESS [Suspect]
     Active Substance: PRAZOSIN HYDROCHLORIDE
     Dosage: 2.5 MG (HALF A 5 MG TABLET ), DAILY
  6. VISKEN [Concomitant]
     Active Substance: PINDOLOL
     Dosage: UNK
  7. PHENERGAN [Concomitant]
     Active Substance: PROMETHAZINE HYDROCHLORIDE
     Dosage: UNK UNK, AS NEEDED

REACTIONS (5)
  - Nausea [Not Recovered/Not Resolved]
  - Fear [Unknown]
  - Nervousness [Not Recovered/Not Resolved]
  - Dizziness [Not Recovered/Not Resolved]
  - Feeling abnormal [Not Recovered/Not Resolved]
